FAERS Safety Report 7409077-2 (Version None)
Quarter: 2011Q2

REPORT INFORMATION
  Report Type: 
  Country: None (occurrence: None)
  Receive Date: 20110412
  Receipt Date: 20110329
  Transmission Date: 20111010
  Serious: Yes (Hospitalization, Other)
  Sender: FDA-Public Use
  Company Number: US-CELGENEUS-163-21880-11030113

PATIENT
  Sex: Male

DRUGS (12)
  1. PREDNISONE [Concomitant]
     Indication: POEMS SYNDROME
     Route: 065
  2. FUROSEMIDE [Concomitant]
     Route: 065
  3. LYRICA [Concomitant]
     Route: 065
  4. LISINOPRIL [Concomitant]
     Route: 065
  5. REVLIMID [Suspect]
     Dosage: 15 MILLIGRAM
     Route: 048
     Dates: start: 20110201, end: 20110208
  6. REGLAN [Concomitant]
     Route: 065
  7. ASPIRIN [Concomitant]
     Route: 065
  8. METOPROLOL TARTRATE [Concomitant]
     Route: 065
  9. OMEPRAZOLE [Concomitant]
     Route: 065
  10. REVLIMID [Suspect]
     Indication: POEMS SYNDROME
     Dosage: 10 MILLIGRAM
     Route: 048
     Dates: start: 20101015, end: 20110201
  11. KLOR-CON [Concomitant]
     Route: 065
  12. METHADONE [Concomitant]
     Indication: PAIN
     Route: 065

REACTIONS (2)
  - COLON CANCER [None]
  - DIARRHOEA [None]
